FAERS Safety Report 9355273 (Version 2)
Quarter: 2013Q3

REPORT INFORMATION
  Report Type: Spontaneous
  Country: US (occurrence: US)
  Receive Date: 20130619
  Receipt Date: 20130719
  Transmission Date: 20140515
  Serious: No
  Sender: FDA-Public Use
  Company Number: US-PFIZER INC-2013174390

PATIENT
  Age: 68 Year
  Sex: Female

DRUGS (2)
  1. LATANOPROST [Suspect]
     Indication: INTRAOCULAR PRESSURE INCREASED
     Dosage: 1 GTT, UNK
     Route: 047
  2. METOPROLOL [Concomitant]
     Indication: HEART RATE ABNORMAL
     Dosage: UNK

REACTIONS (1)
  - Dry eye [Unknown]
